FAERS Safety Report 9498318 (Version 1)
Quarter: 2013Q3

REPORT INFORMATION
  Report Type: Spontaneous
  Country: FR (occurrence: FR)
  Receive Date: 20130904
  Receipt Date: 20130904
  Transmission Date: 20140515
  Serious: Yes (Hospitalization)
  Sender: FDA-Public Use
  Company Number: FR-PFIZER INC-2013248948

PATIENT
  Age: 45 Year
  Sex: Female

DRUGS (2)
  1. ADEPAL [Suspect]
     Indication: CONTRACEPTION
     Dosage: 1 DF (150-200UG/ 30-40UG), 1X/DAY
     Route: 048
     Dates: end: 20130716
  2. HUMIRA [Suspect]
     Indication: ANKYLOSING SPONDYLITIS
     Dosage: 1 DF, EVERY TWO WEEKS
     Route: 058
     Dates: start: 2010

REACTIONS (3)
  - Peripheral artery thrombosis [Recovered/Resolved]
  - Renal vein thrombosis [Recovering/Resolving]
  - Congestive cardiomyopathy [Unknown]
